FAERS Safety Report 16952262 (Version 1)
Quarter: 2019Q4

REPORT INFORMATION
  Report Type: Spontaneous
  Country: US (occurrence: US)
  Receive Date: 20191022
  Receipt Date: 20191022
  Transmission Date: 20200122
  Serious: No
  Sender: FDA-Public Use
  Company Number: None

PATIENT
  Age: 67 Year
  Sex: Male
  Weight: 116 kg

DRUGS (22)
  1. NEOSTIGMINE. [Concomitant]
     Active Substance: NEOSTIGMINE METHYLSULFATE
     Dates: start: 20190601, end: 20190601
  2. ASPIRIN. [Concomitant]
     Active Substance: ASPIRIN
     Dates: start: 20190602, end: 20190609
  3. VASOPRESSIN. [Concomitant]
     Active Substance: VASOPRESSIN
     Dates: start: 20190601, end: 20190601
  4. EPINEPHRINE. [Concomitant]
     Active Substance: EPINEPHRINE
  5. DEXAMETHASONE. [Concomitant]
     Active Substance: DEXAMETHASONE
     Dates: start: 20190602, end: 20190603
  6. HEPARIN [Concomitant]
     Active Substance: HEPARIN SODIUM
     Dates: start: 20190601, end: 20190609
  7. ROCURONIUM [Concomitant]
     Active Substance: ROCURONIUM BROMIDE
     Dates: start: 20190601, end: 20190601
  8. MIDAZOLAM [Concomitant]
     Active Substance: MIDAZOLAM HYDROCHLORIDE
     Dates: start: 20190601, end: 20190601
  9. CEFAZOLAN [Concomitant]
     Dates: start: 20190601, end: 20190601
  10. PROTAMINE [Concomitant]
     Active Substance: PROTAMINE
  11. NICARDIPINE [Suspect]
     Active Substance: NICARDIPINE
     Indication: HYPERTENSION
     Route: 041
     Dates: start: 20190601, end: 20190603
  12. SUCCINYLCHOLINE [Concomitant]
     Active Substance: SUCCINYLCHOLINE
     Dates: start: 20190601, end: 20190601
  13. DEXMEDETOMIDINE. [Concomitant]
     Active Substance: DEXMEDETOMIDINE
     Dates: start: 20190601, end: 20190603
  14. PROPOFOL. [Concomitant]
     Active Substance: PROPOFOL
     Dates: start: 20190601, end: 20190602
  15. FUROSEMIDE. [Concomitant]
     Active Substance: FUROSEMIDE
     Dates: start: 20190602, end: 20190603
  16. PHENYLEPHRINE [Concomitant]
     Active Substance: PHENYLEPHRINE HYDROCHLORIDE
     Dates: start: 20190601, end: 20190601
  17. FENTANYL. [Concomitant]
     Active Substance: FENTANYL
     Dates: start: 20190601, end: 20190602
  18. ESMOLOL [Concomitant]
     Active Substance: ESMOLOL HYDROCHLORIDE
     Dates: start: 20190601, end: 20190601
  19. INSULIN [Concomitant]
     Active Substance: INSULIN NOS
     Dates: start: 20190601, end: 20190603
  20. ACETAMINOPHEN. [Concomitant]
     Active Substance: ACETAMINOPHEN
     Dates: start: 20190601, end: 20190608
  21. GLYCOPYRROLATE. [Concomitant]
     Active Substance: GLYCOPYRROLATE
     Dates: start: 20190601, end: 20190601
  22. ALBUMIN [Concomitant]
     Active Substance: ALBUMIN HUMAN
     Dates: start: 20190602, end: 20190602

REACTIONS (1)
  - Angioedema [None]

NARRATIVE: CASE EVENT DATE: 20190601
